FAERS Safety Report 14319448 (Version 1)
Quarter: 2017Q4

REPORT INFORMATION
  Report Type: Spontaneous
  Country: PL (occurrence: PL)
  Receive Date: 20171222
  Receipt Date: 20171222
  Transmission Date: 20180321
  Serious: Yes (Life-Threatening)
  Sender: FDA-Public Use
  Company Number: PL-TEVA-2017-PL-835589

PATIENT
  Age: 14 Year
  Sex: Female
  Weight: 47.7 kg

DRUGS (3)
  1. LAMOTRIX [Suspect]
     Active Substance: LAMOTRIGINE
     Indication: DEPRESSED MOOD
     Route: 048
     Dates: start: 20170407, end: 20170420
  2. DURACEF [Concomitant]
     Active Substance: CEFADROXIL
     Route: 048
     Dates: start: 20170418, end: 20170420
  3. IBUPROFEN. [Suspect]
     Active Substance: IBUPROFEN
     Indication: PYREXIA
     Route: 048
     Dates: start: 20170415, end: 20170417

REACTIONS (6)
  - General physical health deterioration [Recovering/Resolving]
  - Burning sensation [Recovering/Resolving]
  - Toxic epidermal necrolysis [Recovering/Resolving]
  - Rash [Recovering/Resolving]
  - Blister [Recovering/Resolving]
  - Pyrexia [Recovering/Resolving]

NARRATIVE: CASE EVENT DATE: 20170416
